FAERS Safety Report 21021791 (Version 1)
Quarter: 2022Q2

REPORT INFORMATION
  Report Type: Report from Study
  Country: JP (occurrence: JP)
  Receive Date: 20220629
  Receipt Date: 20220629
  Transmission Date: 20220721
  Serious: Yes (Hospitalization, Other)
  Sender: FDA-Public Use
  Company Number: JP-ASTELLAS-2022JP003194

PATIENT
  Sex: Female
  Weight: 1.7 kg

DRUGS (1)
  1. TACROLIMUS [Suspect]
     Active Substance: TACROLIMUS
     Indication: Infertility female
     Dosage: 3 MG/DAY, UNKNOWN FREQ.
     Route: 064
     Dates: start: 201801, end: 201809

REACTIONS (4)
  - Infantile apnoea [Recovered/Resolved]
  - Low birth weight baby [Recovered/Resolved]
  - Premature baby [Unknown]
  - Foetal exposure during pregnancy [Unknown]

NARRATIVE: CASE EVENT DATE: 20180901
